FAERS Safety Report 7620193-2 (Version None)
Quarter: 2011Q3

REPORT INFORMATION
  Report Type: 
  Country: None (occurrence: None)
  Receive Date: 20110719
  Receipt Date: 20110705
  Transmission Date: 20111222
  Serious: Yes (Hospitalization)
  Sender: FDA-Public Use
  Company Number: PHHY2011TR61657

PATIENT
  Sex: Female

DRUGS (1)
  1. ZOLEDRONOC ACID [Suspect]
     Dosage: UNK UKN, 1 DOSE PER YEAR
     Route: 042
     Dates: start: 20110630

REACTIONS (8)
  - LUNG INFILTRATION [None]
  - C-REACTIVE PROTEIN INCREASED [None]
  - BREAST PAIN [None]
  - WHITE BLOOD CELL COUNT INCREASED [None]
  - MYALGIA [None]
  - DYSPNOEA [None]
  - PYREXIA [None]
  - MUSCULAR WEAKNESS [None]
